FAERS Safety Report 16949058 (Version 1)
Quarter: 2019Q4

REPORT INFORMATION
  Report Type: Spontaneous
  Country: CA (occurrence: CA)
  Receive Date: 20191023
  Receipt Date: 20191023
  Transmission Date: 20200122
  Serious: Yes (Hospitalization)
  Sender: FDA-Public Use
  Company Number: CA-ROCHE-2445657

PATIENT
  Sex: Male

DRUGS (2)
  1. ACETYLCYSTEINE. [Suspect]
     Active Substance: ACETYLCYSTEINE
     Indication: PRODUCT USED FOR UNKNOWN INDICATION
     Dosage: INHALATION
     Route: 065
  2. PULMOZYME [Suspect]
     Active Substance: DORNASE ALFA
     Indication: BRONCHIAL SECRETION RETENTION
     Dosage: ROUTE OF ADMIN- INHALATION?SOLUTION
     Route: 065

REACTIONS (3)
  - Intentional product misuse [Unknown]
  - Bronchial secretion retention [Unknown]
  - Pneumothorax [Unknown]
